FAERS Safety Report 5779512-4 (Version None)
Quarter: 2008Q2

REPORT INFORMATION
  Report Type: 
  Country: None (occurrence: None)
  Receive Date: 20080619
  Receipt Date: 20080609
  Transmission Date: 20081010
  Serious: Yes (Death, Hospitalization)
  Sender: FDA-Public Use
  Company Number: US-PFIZER INC-2006072624

PATIENT
  Sex: Male
  Weight: 145.2 kg

DRUGS (15)
  1. CELEBREX [Suspect]
     Indication: ARTHRITIS
     Dates: start: 19990110, end: 20030628
  2. CELEBREX [Suspect]
     Indication: PAIN
  3. ALBUTEROL [Concomitant]
     Route: 065
  4. LOTENSIN [Concomitant]
     Route: 065
  5. DYAZIDE [Concomitant]
     Route: 065
  6. RANITIDINE HYDROCHLORIDE [Concomitant]
     Indication: GASTRIC DISORDER
     Route: 048
  7. WARFARIN SODIUM [Concomitant]
     Indication: THROMBOSIS PROPHYLAXIS
     Route: 048
  8. CLOPIDOGREL BISULFATE [Concomitant]
     Indication: CARDIOVASCULAR DISORDER
     Route: 048
  9. DILTIAZEM [Concomitant]
     Indication: BLOOD PRESSURE
     Route: 048
  10. METOPROLOL [Concomitant]
     Indication: BLOOD PRESSURE
     Route: 048
  11. RABEPRAZOLE SODIUM [Concomitant]
     Indication: GASTROOESOPHAGEAL REFLUX DISEASE
     Route: 048
  12. VERAPAMIL HYDROCHLORIDE [Concomitant]
     Indication: CARDIAC DISORDER
     Route: 048
  13. TERAZOSIN HCL [Concomitant]
     Indication: PROSTATIC DISORDER
     Route: 048
  14. LORAZEPAM [Concomitant]
     Indication: EMOTIONAL DISORDER
     Route: 048
  15. HYDROCHLOROTHIAZIDE [Concomitant]
     Indication: BLOOD PRESSURE
     Route: 048

REACTIONS (2)
  - MYOCARDIAL INFARCTION [None]
  - PULMONARY EMBOLISM [None]
